FAERS Safety Report 24409895 (Version 1)
Quarter: 2024Q4

REPORT INFORMATION
  Report Type: Spontaneous
  Country: US (occurrence: US)
  Receive Date: 20241008
  Receipt Date: 20241008
  Transmission Date: 20250114
  Serious: Yes (Other)
  Sender: CELLTRION
  Company Number: US-CELLTRION INC.-2023US023606

PATIENT

DRUGS (1)
  1. INFLECTRA [Suspect]
     Active Substance: INFLIXIMAB-DYYB
     Indication: Pulmonary tuberculosis
     Dosage: 100 MG, SOLR
     Route: 065

REACTIONS (2)
  - Pulmonary tuberculosis [Unknown]
  - Off label use [Unknown]
